FAERS Safety Report 5830960-3 (Version None)
Quarter: 2008Q3

REPORT INFORMATION
  Report Type: 
  Country: None (occurrence: None)
  Receive Date: 20080801
  Receipt Date: 20080229
  Transmission Date: 20090109
  Serious: Yes (Other)
  Sender: FDA-Public Use
  Company Number: US-BRISTOL-MYERS SQUIBB COMPANY-14097398

PATIENT
  Age: 56 Year
  Sex: Female
  Weight: 75 kg

DRUGS (12)
  1. COUMADIN [Suspect]
     Indication: THROMBOSIS
  2. LASIX [Concomitant]
  3. ASPIRIN [Concomitant]
  4. DILANTIN [Concomitant]
     Dosage: AT BEDTIME
  5. XANAX [Concomitant]
  6. LORCET-HD [Concomitant]
  7. NEXIUM [Concomitant]
  8. ANTIVERT [Concomitant]
  9. ZOCOR [Concomitant]
  10. POTASSIUM CHLORIDE [Concomitant]
  11. NITROGLYCERIN [Concomitant]
  12. LOPRESSOR [Concomitant]

REACTIONS (1)
  - INTERNATIONAL NORMALISED RATIO INCREASED [None]
